FAERS Safety Report 8359419-9 (Version None)
Quarter: 2012Q2

REPORT INFORMATION
  Report Type: 
  Country: None (occurrence: None)
  Receive Date: 20120515
  Receipt Date: 20120507
  Transmission Date: 20120825
  Serious: Yes (Hospitalization, Other)
  Sender: FDA-Public Use
  Company Number: US-US-EMD SERONO, INC.-7131115

PATIENT
  Sex: Female

DRUGS (2)
  1. NEXIUM [Concomitant]
     Indication: GASTROOESOPHAGEAL REFLUX DISEASE
  2. REBIF [Suspect]
     Indication: MULTIPLE SCLEROSIS
     Route: 058
     Dates: start: 20110630

REACTIONS (8)
  - TOOTH DISORDER [None]
  - INFLUENZA LIKE ILLNESS [None]
  - GASTROOESOPHAGEAL REFLUX DISEASE [None]
  - MULTIPLE SCLEROSIS RELAPSE [None]
  - PAIN [None]
  - OPTIC NEURITIS [None]
  - NAUSEA [None]
  - MIGRAINE [None]
